FAERS Safety Report 22293845 (Version 2)
Quarter: 2023Q2

REPORT INFORMATION
  Report Type: Spontaneous
  Country: US (occurrence: US)
  Receive Date: 20230508
  Receipt Date: 20230510
  Transmission Date: 20230721
  Serious: Yes (Hospitalization, Other)
  Sender: FDA-Public Use
  Company Number: US-MYLANLABS-2023M1046867

PATIENT
  Sex: Female

DRUGS (1)
  1. FINGOLIMOD [Suspect]
     Active Substance: FINGOLIMOD
     Indication: Product used for unknown indication
     Dosage: 0.5 MILLIGRAM
     Route: 065
     Dates: start: 20230308

REACTIONS (7)
  - Cardiac flutter [Unknown]
  - Paraesthesia [Not Recovered/Not Resolved]
  - Hypoaesthesia [Unknown]
  - Discomfort [Unknown]
  - Headache [Unknown]
  - Arthralgia [Unknown]
  - Drug ineffective [Unknown]

NARRATIVE: CASE EVENT DATE: 20230315
